FAERS Safety Report 6663377-2 (Version None)
Quarter: 2010Q1

REPORT INFORMATION
  Report Type: 
  Country: None (occurrence: None)
  Receive Date: 20100330
  Receipt Date: 20100330
  Transmission Date: 20100710
  Serious: Yes (Other)
  Sender: FDA-Public Use
  Company Number: None

PATIENT
  Age: 69 Year
  Sex: Female
  Weight: 71.6683 kg

DRUGS (2)
  1. LANSOPRAZOLE [Suspect]
     Indication: GASTRITIS
     Dosage: 1 CAPSULE PER DAY PO
     Route: 048
     Dates: start: 20091229, end: 20100128
  2. LANSOPRAZOLE [Suspect]
     Indication: GASTROOESOPHAGEAL REFLUX DISEASE
     Dosage: 1 CAPSULE PER DAY PO
     Route: 048
     Dates: start: 20091229, end: 20100128

REACTIONS (5)
  - ABDOMINAL DISTENSION [None]
  - DECREASED APPETITE [None]
  - FLATULENCE [None]
  - GASTROINTESTINAL PAIN [None]
  - PAIN [None]
